FAERS Safety Report 20088660 (Version 4)
Quarter: 2021Q4

REPORT INFORMATION
  Report Type: Spontaneous
  Country: PT (occurrence: PT)
  Receive Date: 20211119
  Receipt Date: 20211202
  Transmission Date: 20220303
  Serious: Yes (Hospitalization, Other)
  Sender: FDA-Public Use
  Company Number: PT-TEVA-2021-PT-1971744

PATIENT
  Age: 54 Year
  Sex: Female

DRUGS (6)
  1. ZOLEDRONIC ACID [Suspect]
     Active Substance: ZOLEDRONIC ACID
     Indication: Vertebral column mass
     Dosage: UNK
     Route: 065
  2. ZOLEDRONIC ACID [Suspect]
     Active Substance: ZOLEDRONIC ACID
     Indication: Neck mass
  3. ZOLEDRONIC ACID [Suspect]
     Active Substance: ZOLEDRONIC ACID
     Indication: Disease progression
  4. DEXAMETHASONE [Concomitant]
     Active Substance: DEXAMETHASONE
     Indication: Neck mass
     Dosage: UNK
     Route: 065
  5. THALIDOMIDE [Concomitant]
     Active Substance: THALIDOMIDE
     Indication: Neck mass
     Dosage: UNK
     Route: 065
  6. CYCLOPHOSPHAMIDE [Concomitant]
     Active Substance: CYCLOPHOSPHAMIDE
     Indication: Neck mass
     Dosage: UNK
     Route: 065

REACTIONS (11)
  - Renal tubular dysfunction [Recovered/Resolved]
  - Renal impairment [Recovering/Resolving]
  - IgA nephropathy [Recovered/Resolved with Sequelae]
  - Toxicity to various agents [Recovering/Resolving]
  - Tubulointerstitial nephritis [Recovering/Resolving]
  - Renal tubular atrophy [Recovering/Resolving]
  - Mesangioproliferative glomerulonephritis [Unknown]
  - Chronic kidney disease [Recovering/Resolving]
  - Pyelonephritis acute [Unknown]
  - Glomerulonephritis membranoproliferative [Unknown]
  - Off label use [Unknown]
